FAERS Safety Report 7303655-7 (Version None)
Quarter: 2011Q1

REPORT INFORMATION
  Report Type: 
  Country: None (occurrence: None)
  Receive Date: 20110221
  Receipt Date: 20110214
  Transmission Date: 20110831
  Serious: Yes (Death, Life-Threatening, Hospitalization)
  Sender: FDA-Public Use
  Company Number: US-AMGEN-KDL443973

PATIENT
  Age: 83 Year
  Sex: Female
  Weight: 53.1 kg

DRUGS (10)
  1. PROCRIT [Suspect]
     Indication: APLASTIC ANAEMIA
     Dosage: 40000 IU, QWK
     Route: 065
     Dates: start: 20030101
  2. DEFERASIROX [Concomitant]
     Dosage: 1100 MG, QD
     Route: 048
  3. OMEPRAZOLE [Concomitant]
     Dosage: 20 MG, QD
     Route: 048
  4. METRONIDAZOLE [Concomitant]
     Dosage: 250 MG, QID
     Route: 048
  5. FOLIC ACID [Concomitant]
     Dosage: 1 MG, QD
     Route: 048
  6. POTASSIUM CHLORIDE [Concomitant]
     Dosage: 20 A?G, QD
     Route: 048
  7. UNSPECIFIED TOPICAL PRODUCT [Concomitant]
     Dosage: .1 %, BID
     Route: 061
  8. GABAPENTIN [Concomitant]
     Dosage: 300 MG, TID
     Route: 048
  9. METOPROLOL [Concomitant]
     Dosage: UNK UNK, UNK
     Route: 048
  10. VESICARE [Concomitant]
     Dosage: 15 MG, QOD
     Route: 048

REACTIONS (5)
  - CARDIAC ARREST [None]
  - SEPSIS [None]
  - PNEUMONIA [None]
  - DYSPNOEA [None]
  - RESPIRATORY DISTRESS [None]
